FAERS Safety Report 10759949 (Version 1)
Quarter: 2015Q1

REPORT INFORMATION
  Report Type: Spontaneous
  Country: US (occurrence: US)
  Receive Date: 20150203
  Receipt Date: 20150203
  Transmission Date: 20150721
  Serious: Yes (Death)
  Sender: FDA-Public Use
  Company Number: US-PERRIGO-15US001011

PATIENT
  Age: 38 Year
  Sex: Female

DRUGS (7)
  1. PROMETHAZINE HYDROCHLORIDE 12.5 MG 4J3 [Suspect]
     Active Substance: PROMETHAZINE HYDROCHLORIDE
     Indication: DRUG ABUSE
     Dosage: UNK
     Route: 065
  2. COCAINE [Suspect]
     Active Substance: COCAINE
     Indication: DRUG ABUSE
     Dosage: UNK
     Route: 065
  3. HYDROCODONE [Suspect]
     Active Substance: HYDROCODONE
     Indication: DRUG ABUSE
     Dosage: UNK
     Route: 065
  4. ACETAMINOPHEN 650MG ER 544 [Suspect]
     Active Substance: ACETAMINOPHEN
     Indication: DRUG ABUSE
     Dosage: UNK
     Route: 065
  5. ETHANOL [Suspect]
     Active Substance: ALCOHOL
     Indication: ALCOHOL ABUSE
     Dosage: UNK
     Route: 065
  6. DOXYLAMINE SUCCINATE 25 MG 441 [Suspect]
     Active Substance: DOXYLAMINE SUCCINATE
     Indication: DRUG ABUSE
     Dosage: UNK
     Route: 065
  7. CYCLOBENZAPRINE [Suspect]
     Active Substance: CYCLOBENZAPRINE
     Indication: DRUG ABUSE
     Dosage: UNK
     Route: 065

REACTIONS (2)
  - Death [Fatal]
  - Drug abuse [None]
